FAERS Safety Report 25743664 (Version 1)
Quarter: 2025Q3

REPORT INFORMATION
  Report Type: Spontaneous
  Country: US (occurrence: US)
  Receive Date: 20250831
  Receipt Date: 20250831
  Transmission Date: 20251021
  Serious: Yes (Other)
  Sender: SANOFI AVENTIS
  Company Number: US-MLMSERVICE-20250804-PI601157-00218-1

PATIENT
  Age: 11 Year
  Sex: Male

DRUGS (16)
  1. METHOTREXATE [Suspect]
     Active Substance: METHOTREXATE
     Indication: Central nervous system lymphoma
     Route: 037
  2. METHOTREXATE [Suspect]
     Active Substance: METHOTREXATE
     Indication: Diffuse large B-cell lymphoma
  3. HYDROCORTISONE [Suspect]
     Active Substance: HYDROCORTISONE
     Indication: Central nervous system lymphoma
     Route: 037
  4. HYDROCORTISONE [Suspect]
     Active Substance: HYDROCORTISONE
     Indication: Diffuse large B-cell lymphoma
  5. CYTARABINE [Suspect]
     Active Substance: CYTARABINE
     Indication: Central nervous system lymphoma
     Route: 037
  6. CYTARABINE [Suspect]
     Active Substance: CYTARABINE
     Indication: Diffuse large B-cell lymphoma
  7. RITUXIMAB [Suspect]
     Active Substance: RITUXIMAB
     Indication: Central nervous system lymphoma
     Route: 037
  8. RITUXIMAB [Suspect]
     Active Substance: RITUXIMAB
     Indication: Diffuse large B-cell lymphoma
  9. CYCLOPHOSPHAMIDE [Concomitant]
     Active Substance: CYCLOPHOSPHAMIDE
     Indication: Central nervous system lymphoma
  10. CYCLOPHOSPHAMIDE [Concomitant]
     Active Substance: CYCLOPHOSPHAMIDE
     Indication: Diffuse large B-cell lymphoma
  11. DOXORUBICIN [Concomitant]
     Active Substance: DOXORUBICIN
     Indication: Central nervous system lymphoma
  12. DOXORUBICIN [Concomitant]
     Active Substance: DOXORUBICIN
     Indication: Diffuse large B-cell lymphoma
  13. VINBLASTINE [Concomitant]
     Active Substance: VINBLASTINE
     Indication: Central nervous system lymphoma
  14. VINBLASTINE [Concomitant]
     Active Substance: VINBLASTINE
     Indication: Diffuse large B-cell lymphoma
  15. PREDNISONE [Concomitant]
     Active Substance: PREDNISONE
     Indication: Central nervous system lymphoma
  16. PREDNISONE [Concomitant]
     Active Substance: PREDNISONE
     Indication: Diffuse large B-cell lymphoma

REACTIONS (4)
  - Mucosal inflammation [Unknown]
  - Febrile neutropenia [Unknown]
  - Neuropathy peripheral [Unknown]
  - Meningitis aseptic [Unknown]
